FAERS Safety Report 5000885-4 (Version None)
Quarter: 2006Q2

REPORT INFORMATION
  Report Type: 
  Country: None (occurrence: None)
  Receive Date: 20060512
  Receipt Date: 20050706
  Transmission Date: 20061013
  Serious: No
  Sender: FDA-Public Use
  Company Number: US-GLAXOSMITHKLINE-A0565164A

PATIENT
  Age: 50 Year
  Sex: Female

DRUGS (2)
  1. RELAFEN [Suspect]
     Indication: RHEUMATOID ARTHRITIS
     Route: 048
     Dates: start: 20050629, end: 20050705
  2. UNKNOWN MEDICATION [Concomitant]

REACTIONS (1)
  - RASH [None]
